FAERS Safety Report 4345204-1 (Version None)
Quarter: 2004Q2

REPORT INFORMATION
  Report Type: 
  Country: None (occurrence: None)
  Receive Date: 20040420
  Receipt Date: 20040407
  Transmission Date: 20050107
  Serious: Yes (Other)
  Sender: FDA-Public Use
  Company Number: 2004208215US

PATIENT
  Age: 85 Year
  Sex: Female

DRUGS (2)
  1. LINEZOLID (LINEZOLID) TABLET [Suspect]
     Indication: STAPHYLOCOCCAL INFECTION
     Dosage: ORAL
     Route: 048
  2. CITALOPRAM [Suspect]
     Indication: DEPRESSION

REACTIONS (13)
  - CONFUSIONAL STATE [None]
  - DRUG INTERACTION [None]
  - DYSARTHRIA [None]
  - FEEDING DISORDER [None]
  - GAIT DISTURBANCE [None]
  - GENERAL PHYSICAL HEALTH DETERIORATION [None]
  - HYPERREFLEXIA [None]
  - HYPERTONIA [None]
  - MOBILITY DECREASED [None]
  - PANCYTOPENIA [None]
  - RESTLESSNESS [None]
  - SEROTONIN SYNDROME [None]
  - TREMOR [None]
